FAERS Safety Report 18027030 (Version 1)
Quarter: 2020Q3

REPORT INFORMATION
  Report Type: Spontaneous
  Country: US (occurrence: US)
  Receive Date: 20200715
  Receipt Date: 20200715
  Transmission Date: 20201103
  Serious: No
  Sender: FDA-Public Use
  Company Number: US-AKRON, INC.-2087396

PATIENT

DRUGS (1)
  1. TROPICAMIDE OPHTHALMIC SOL 1% [Suspect]
     Active Substance: TROPICAMIDE
     Route: 047

REACTIONS (2)
  - Ocular hyperaemia [Unknown]
  - Eye pruritus [Unknown]
